APPROVED DRUG PRODUCT: OXYCODONE HYDROCHLORIDE
Active Ingredient: OXYCODONE HYDROCHLORIDE
Strength: 100MG/5ML
Dosage Form/Route: SOLUTION;ORAL
Application: A206822 | Product #001
Applicant: PHARMACEUTICAL ASSOCIATES INC
Approved: Aug 15, 2017 | RLD: No | RS: No | Type: DISCN